FAERS Safety Report 6298491-7 (Version None)
Quarter: 2009Q3

REPORT INFORMATION
  Report Type: 
  Country: None (occurrence: None)
  Receive Date: 20090805
  Receipt Date: 20090722
  Transmission Date: 20100115
  Serious: Yes (Hospitalization, Other)
  Sender: FDA-Public Use
  Company Number: FR-GILEAD-2009-0023266

PATIENT
  Sex: Female

DRUGS (12)
  1. TRUVADA [Suspect]
     Indication: HIV INFECTION
     Route: 048
     Dates: end: 20090414
  2. VANCOMYCIN [Suspect]
     Indication: STAPHYLOCOCCAL INFECTION
     Route: 042
     Dates: start: 20090312, end: 20090316
  3. VANCOMYCIN [Suspect]
     Route: 042
     Dates: start: 20090307
  4. VANCOMYCIN [Suspect]
     Route: 042
     Dates: start: 20090222, end: 20090224
  5. VANCOMYCIN [Suspect]
     Route: 042
     Dates: start: 20090219
  6. NORVIR [Suspect]
     Indication: HIV INFECTION
     Route: 048
     Dates: end: 20090414
  7. CRIXIVAN [Suspect]
     Indication: HIV INFECTION
     Dates: end: 20090414
  8. FUCIDINE CAP [Suspect]
     Indication: STAPHYLOCOCCAL INFECTION
     Dates: start: 20090317, end: 20090414
  9. FUCIDINE CAP [Suspect]
     Route: 048
     Dates: start: 20090224, end: 20090307
  10. BACTRIM DS [Suspect]
     Route: 048
     Dates: start: 20090224, end: 20090317
  11. ZYVOXID [Concomitant]
     Indication: STAPHYLOCOCCAL INFECTION
     Route: 048
     Dates: start: 20090324, end: 20090414
  12. GENTAMICINE [Concomitant]
     Route: 042
     Dates: start: 20090219, end: 20090224

REACTIONS (6)
  - ALANINE AMINOTRANSFERASE INCREASED [None]
  - ASPARTATE AMINOTRANSFERASE INCREASED [None]
  - JAUNDICE [None]
  - OSTEONECROSIS [None]
  - OVERDOSE [None]
  - RENAL FAILURE [None]
